FAERS Safety Report 4577610-4 (Version None)
Quarter: 2005Q1

REPORT INFORMATION
  Report Type: 
  Country: None (occurrence: None)
  Receive Date: 20050210
  Receipt Date: 20030605
  Transmission Date: 20050727
  Serious: Yes (Hospitalization, Disabling, Other)
  Sender: FDA-Public Use
  Company Number: US-MERCK-0306USA00626

PATIENT
  Age: 47 Year
  Sex: Female
  Weight: 135 kg

DRUGS (1)
  1. VIOXX [Suspect]
     Indication: ARTHRALGIA
     Route: 048
     Dates: end: 20010719

REACTIONS (79)
  - ABDOMINAL PAIN [None]
  - ADNEXA UTERI MASS [None]
  - ADVERSE EVENT [None]
  - AGITATION [None]
  - ARTERIOVENOUS MALFORMATION [None]
  - ATHEROSCLEROSIS [None]
  - BASEDOW'S DISEASE [None]
  - CARDIAC DISORDER [None]
  - CARDIAC FAILURE CONGESTIVE [None]
  - CARDIAC MURMUR [None]
  - CELLULITIS [None]
  - CHEST INJURY [None]
  - CHEST PAIN [None]
  - CHRONIC OBSTRUCTIVE PULMONARY DISEASE [None]
  - COLONIC POLYP [None]
  - COUGH [None]
  - DIABETES MELLITUS [None]
  - DIABETES MELLITUS NON-INSULIN-DEPENDENT [None]
  - DIPLOPIA [None]
  - DISORDER OF ORBIT [None]
  - DIVERTICULUM [None]
  - DIVERTICULUM INTESTINAL [None]
  - DIZZINESS [None]
  - DRUG HYPERSENSITIVITY [None]
  - DYSPNOEA [None]
  - DYSPNOEA EXERTIONAL [None]
  - DYSPNOEA PAROXYSMAL NOCTURNAL [None]
  - ENDOCRINE OPHTHALMOPATHY [None]
  - EPISCLERITIS [None]
  - EYE DISORDER [None]
  - EYE PAIN [None]
  - FATIGUE [None]
  - FLANK PAIN [None]
  - FLUSHING [None]
  - HAEMORRHOIDS [None]
  - HEADACHE [None]
  - HYPERHIDROSIS [None]
  - HYPERTENSION [None]
  - INCONTINENCE [None]
  - INFLUENZA LIKE ILLNESS [None]
  - INJURY [None]
  - INSOMNIA [None]
  - LIMB DISCOMFORT [None]
  - MASS [None]
  - METASTATIC NEOPLASM [None]
  - MUSCLE SPASMS [None]
  - MYOCARDIAL INFARCTION [None]
  - MYOPATHY [None]
  - MYOSITIS [None]
  - NASAL CYST [None]
  - NAUSEA [None]
  - NEPHROLITHIASIS [None]
  - NEUROPATHY PERIPHERAL [None]
  - NON-CARDIAC CHEST PAIN [None]
  - OEDEMA [None]
  - OEDEMA PERIPHERAL [None]
  - OPTIC ATROPHY [None]
  - OPTIC NEURITIS [None]
  - OPTIC NEUROPATHY [None]
  - ORTHOPNOEA [None]
  - OVARIAN CYST [None]
  - OVARIAN NEOPLASM [None]
  - PAIN IN EXTREMITY [None]
  - PALPITATIONS [None]
  - PANIC DISORDER [None]
  - PANIC REACTION [None]
  - PNEUMONIA [None]
  - PYELONEPHRITIS [None]
  - RASH [None]
  - ROAD TRAFFIC ACCIDENT [None]
  - SLEEP APNOEA SYNDROME [None]
  - SWELLING FACE [None]
  - SYSTEMIC LUPUS ERYTHEMATOSUS [None]
  - THROMBOPHLEBITIS SUPERFICIAL [None]
  - TREATMENT NONCOMPLIANCE [None]
  - URINARY TRACT INFECTION [None]
  - VENOUS STASIS [None]
  - WEIGHT INCREASED [None]
  - WHITE BLOOD CELL COUNT INCREASED [None]
